FAERS Safety Report 9152429 (Version 1)
Quarter: 2013Q1

REPORT INFORMATION
  Report Type: Spontaneous
  Country: IN (occurrence: IN)
  Receive Date: 20130308
  Receipt Date: 20130308
  Transmission Date: 20140127
  Serious: Yes (Hospitalization)
  Sender: FDA-Public Use
  Company Number: PHHY2013IN021900

PATIENT
  Age: 15 Year
  Sex: Male

DRUGS (4)
  1. PHENYTOIN [Suspect]
     Indication: EPILEPSY
     Dosage: 200 MG, UNK
  2. VALPROIC ACID [Suspect]
     Indication: EPILEPSY
     Dosage: 2400 MG, QD
  3. VALPROIC ACID [Suspect]
     Dosage: 1200 MG, QD
  4. CLONAZEPAM [Concomitant]

REACTIONS (7)
  - Haematoma [Recovering/Resolving]
  - Fall [Unknown]
  - Swelling [Recovering/Resolving]
  - Eye swelling [Recovering/Resolving]
  - Coagulopathy [Recovering/Resolving]
  - Toxicity to various agents [Unknown]
  - Drug level increased [Unknown]
